FAERS Safety Report 7373610-X (Version None)
Quarter: 2011Q1

REPORT INFORMATION
  Report Type: 
  Country: None (occurrence: None)
  Receive Date: 20110325
  Receipt Date: 20110315
  Transmission Date: 20110831
  Serious: Yes (Disabling, Other)
  Sender: FDA-Public Use
  Company Number: US-BAYER-2010-008779

PATIENT
  Sex: Female
  Weight: 56.689 kg

DRUGS (1)
  1. MIRENA [Suspect]
     Indication: CONTRACEPTION
     Dosage: DAILY DOSE 52 MG
     Route: 015
     Dates: start: 20080101, end: 20100101

REACTIONS (14)
  - HEADACHE [None]
  - RHEUMATOID ARTHRITIS [None]
  - BLOOD GLUCOSE ABNORMAL [None]
  - TREMOR [None]
  - ASTHENIA [None]
  - NAUSEA [None]
  - DROOLING [None]
  - IRRITABLE BOWEL SYNDROME [None]
  - THYROID DISORDER [None]
  - FOOD ALLERGY [None]
  - BREAST CYST [None]
  - LOSS OF CONSCIOUSNESS [None]
  - DIARRHOEA [None]
  - COLITIS ULCERATIVE [None]
